FAERS Safety Report 15447813 (Version 1)
Quarter: 2018Q3

REPORT INFORMATION
  Report Type: Spontaneous
  Country: FR (occurrence: FR)
  Receive Date: 20180928
  Receipt Date: 20180928
  Transmission Date: 20181010
  Serious: Yes (Other)
  Sender: FDA-Public Use
  Company Number: FR-MYLANLABS-2018M1070401

PATIENT
  Age: 65 Year
  Sex: Male
  Weight: 60 kg

DRUGS (2)
  1. ENTRESTO [Suspect]
     Active Substance: SACUBITRIL\VALSARTAN
     Indication: MYOCARDIAL ISCHAEMIA
     Dosage: PROGRESSIVE JUSQU^? DOSE MAX : 97/103 MG/JOUR
     Route: 048
  2. EPLERENONE. [Suspect]
     Active Substance: EPLERENONE
     Indication: MYOCARDIAL ISCHAEMIA
     Dosage: 1 DF, QD, 1 CP LE MIDI
     Route: 048

REACTIONS (2)
  - Acute kidney injury [Recovering/Resolving]
  - Hyperkalaemia [Recovering/Resolving]

NARRATIVE: CASE EVENT DATE: 20170324
